FAERS Safety Report 7047542-0 (Version None)
Quarter: 2010Q4

REPORT INFORMATION
  Report Type: 
  Country: None (occurrence: None)
  Receive Date: 20101015
  Receipt Date: 20101008
  Transmission Date: 20110411
  Serious: Yes (Hospitalization, Other)
  Sender: FDA-Public Use
  Company Number: KR-PFIZER INC-2006143134

PATIENT
  Age: 56 Year
  Sex: Male
  Weight: 54 kg

DRUGS (10)
  1. SUNITINIB MALATE [Suspect]
     Indication: METASTATIC RENAL CELL CARCINOMA
     Dosage: 50 MG, 1X/DAY
     Route: 048
     Dates: start: 20061020
  2. BACLOFEN [Concomitant]
     Route: 048
     Dates: start: 20061031
  3. MULTI-VITAMINS [Concomitant]
     Route: 048
     Dates: start: 20061031, end: 20061113
  4. ARGININE/IBUPROFEN [Concomitant]
     Route: 048
     Dates: start: 20061031, end: 20061113
  5. DIAZEPAM [Concomitant]
     Route: 048
     Dates: start: 20061108
  6. FERROUS SULFATE TAB [Concomitant]
     Route: 048
     Dates: start: 20061031, end: 20061113
  7. MAGNESIUM OXIDE [Concomitant]
     Route: 048
     Dates: start: 20061031, end: 20061113
  8. ZOLPIDEM [Concomitant]
     Route: 048
     Dates: start: 20061031, end: 20061113
  9. RANITIDINE [Concomitant]
     Route: 042
     Dates: start: 20061108, end: 20061108
  10. METOCLOPRAMIDE [Concomitant]
     Route: 042
     Dates: start: 20061108, end: 20061108

REACTIONS (3)
  - HAEMATEMESIS [None]
  - HICCUPS [None]
  - OESOPHAGITIS [None]
